FAERS Safety Report 11755016 (Version 1)
Quarter: 2015Q4

REPORT INFORMATION
  Report Type: Spontaneous
  Country: US (occurrence: US)
  Receive Date: 20151119
  Receipt Date: 20151119
  Transmission Date: 20160304
  Serious: Yes (Other)
  Sender: FDA-Public Use
  Company Number: US-TEVA-610451ACC

PATIENT
  Sex: Female
  Weight: 56.3 kg

DRUGS (3)
  1. PRENATAL VITAMINS [Concomitant]
     Active Substance: VITAMINS
     Indication: VITAMIN SUPPLEMENTATION
  2. PARAGARD T 380A [Suspect]
     Active Substance: COPPER
     Indication: CONTRACEPTION
     Dates: start: 20151103, end: 20151109
  3. LEVOTHYROXINE. [Concomitant]
     Active Substance: LEVOTHYROXINE
     Indication: AUTOIMMUNE THYROIDITIS

REACTIONS (4)
  - Device dislocation [Recovered/Resolved]
  - Muscle spasms [Recovered/Resolved]
  - Abdominal pain lower [Recovered/Resolved]
  - Exposure during breast feeding [Unknown]
